FAERS Safety Report 6688234-7 (Version None)
Quarter: 2010Q2

REPORT INFORMATION
  Report Type: 
  Country: None (occurrence: None)
  Receive Date: 20100420
  Receipt Date: 20100413
  Transmission Date: 20101027
  Serious: Yes (Other)
  Sender: FDA-Public Use
  Company Number: US-SANOFI-AVENTIS-2010SA021816

PATIENT
  Sex: Female

DRUGS (1)
  1. NASACORT AQ [Suspect]
     Route: 045

REACTIONS (2)
  - DEAFNESS [None]
  - HYPOAESTHESIA [None]
